FAERS Safety Report 5252429-X (Version None)
Quarter: 2007Q1

REPORT INFORMATION
  Report Type: 
  Country: None (occurrence: None)
  Receive Date: 20070301
  Receipt Date: 20061103
  Transmission Date: 20070707
  Serious: Yes (Other)
  Sender: FDA-Public Use
  Company Number: US-BRISTOL-MYERS SQUIBB COMPANY-13565817

PATIENT
  Sex: Female

DRUGS (3)
  1. CETUXIMAB [Suspect]
     Indication: COLON CANCER
     Dates: start: 20061001
  2. TYLENOL [Concomitant]
     Indication: PREMEDICATION
     Dates: start: 20061001
  3. BENADRYL [Concomitant]
     Indication: PREMEDICATION
     Dates: start: 20061001

REACTIONS (1)
  - RASH [None]
